FAERS Safety Report 8721862 (Version 2)
Quarter: 2014Q1

REPORT INFORMATION
  Report Type: Spontaneous
  Country: US (occurrence: US)
  Receive Date: 20120814
  Receipt Date: 20140205
  Transmission Date: 20141002
  Serious: Yes (Other)
  Sender: FDA-Public Use
  Company Number: PHEH2012US015606

PATIENT
  Sex: Female

DRUGS (7)
  1. CLOZARIL [Suspect]
     Dosage: 400 MG, UNK
     Dates: start: 1988
  2. CLOZARIL [Suspect]
     Dosage: 300 MG
     Dates: start: 1999
  3. CLOZARIL [Suspect]
     Dosage: 500 MG, UNK
  4. CLOZARIL [Suspect]
     Dosage: 350 MG, QD
     Route: 048
  5. XANAX [Concomitant]
     Dosage: UNK UKN, UNK
     Dates: start: 20120712
  6. INDERAL [Concomitant]
     Dosage: UNK UKN, UNK
  7. ALPRAZOLAM [Concomitant]
     Dosage: UNK

REACTIONS (11)
  - Hallucination, auditory [Unknown]
  - Intervertebral disc protrusion [Unknown]
  - Neck pain [Unknown]
  - Back pain [Unknown]
  - Photosensitivity reaction [Unknown]
  - Drooling [Unknown]
  - Myalgia [Unknown]
  - Muscle spasms [Unknown]
  - Heart rate increased [Unknown]
  - Headache [Unknown]
  - Constipation [Unknown]
